FAERS Safety Report 15000831 (Version 1)
Quarter: 2018Q2

REPORT INFORMATION
  Report Type: Spontaneous
  Country: CA (occurrence: CA)
  Receive Date: 20180612
  Receipt Date: 20180612
  Transmission Date: 20180711
  Serious: Yes (Hospitalization, Disabling, Other)
  Sender: FDA-Public Use
  Company Number: CA-TEVA-2018-CA-902756

PATIENT
  Age: 45 Year
  Sex: Male
  Weight: 87.17 kg

DRUGS (1)
  1. CIPROFLOXACIN. [Suspect]
     Active Substance: CIPROFLOXACIN
     Indication: SINUSITIS
     Route: 048

REACTIONS (12)
  - Confusional state [Unknown]
  - Depression [Unknown]
  - Migraine [Unknown]
  - Neuralgia [Unknown]
  - Rash [Unknown]
  - Tendon rupture [Unknown]
  - Vertigo [Unknown]
  - Anxiety [Unknown]
  - Tendonitis [Unknown]
  - Joint stiffness [Unknown]
  - Gastrointestinal disorder [Unknown]
  - Tenderness [Unknown]
